FAERS Safety Report 5236333-9 (Version None)
Quarter: 2007Q1

REPORT INFORMATION
  Report Type: 
  Country: None (occurrence: None)
  Receive Date: 20061208
  Receipt Date: 20050801
  Transmission Date: 20070707
  Serious: Yes (Other)
  Sender: FDA-Public Use
  Company Number: 2005UW11357

PATIENT
  Age: 76 Year
  Sex: Female

DRUGS (4)
  1. CRESTOR [Suspect]
     Indication: BLOOD CHOLESTEROL INCREASED
     Dates: start: 20050701
  2. PATANOL [Concomitant]
  3. FLONASE [Concomitant]
  4. CLARINEX [Concomitant]

REACTIONS (3)
  - EYE PAIN [None]
  - HALO VISION [None]
  - VISION BLURRED [None]
